FAERS Safety Report 9981086 (Version 1)
Quarter: 2014Q1

REPORT INFORMATION
  Report Type: Spontaneous
  Country: US (occurrence: US)
  Receive Date: 20140307
  Receipt Date: 20140307
  Transmission Date: 20141002
  Serious: No
  Sender: FDA-Public Use
  Company Number: US-PFIZER INC-2014062435

PATIENT
  Age: 81 Year
  Sex: Female

DRUGS (2)
  1. LIPITOR [Suspect]
     Dosage: UNK
  2. SERTRALINE HCL [Suspect]
     Dosage: UNK

REACTIONS (1)
  - Drug hypersensitivity [Unknown]
